FAERS Safety Report 25273613 (Version 1)
Quarter: 2025Q2

REPORT INFORMATION
  Report Type: Spontaneous
  Country: US (occurrence: None)
  Receive Date: 20250505
  Receipt Date: 20250505
  Transmission Date: 20250717
  Serious: Yes (Other)
  Sender: FDA-CTU
  Company Number: None

PATIENT
  Age: 54 Year
  Sex: Female
  Weight: 78.75 kg

DRUGS (5)
  1. WEGOVY [Suspect]
     Active Substance: SEMAGLUTIDE
     Indication: Weight decreased
     Dates: start: 20250125, end: 20250125
  2. VALSARTAN [Concomitant]
     Active Substance: VALSARTAN
  3. TAMOXIFEN [Concomitant]
     Active Substance: TAMOXIFEN
  4. OXYBUTYNIN [Concomitant]
     Active Substance: OXYBUTYNIN
  5. TRAMADOL [Concomitant]
     Active Substance: TRAMADOL

REACTIONS (2)
  - Vomiting projectile [None]
  - Nausea [None]

NARRATIVE: CASE EVENT DATE: 20250125
